FAERS Safety Report 13572901 (Version 1)
Quarter: 2017Q2

REPORT INFORMATION
  Report Type: Spontaneous
  Country: US (occurrence: US)
  Receive Date: 20170523
  Receipt Date: 20170523
  Transmission Date: 20170830
  Serious: No
  Sender: FDA-Public Use
  Company Number: US-GLAXOSMITHKLINE-US2017073165

PATIENT
  Sex: Female

DRUGS (2)
  1. VOLTAREN [Suspect]
     Active Substance: DICLOFENAC SODIUM
     Indication: ARTHRITIS
     Dosage: UNK, IN THE MORNING AND AT NIGHT
     Dates: start: 2016
  2. DICLOFENAC SODIUM TABLET [Suspect]
     Active Substance: DICLOFENAC SODIUM
     Indication: ARTHRITIS
     Dosage: UNK
     Dates: start: 2016

REACTIONS (3)
  - Contraindicated drug prescribed [Unknown]
  - Off label use [Unknown]
  - Inappropriate schedule of drug administration [Unknown]
